FAERS Safety Report 14196896 (Version 3)
Quarter: 2017Q4

REPORT INFORMATION
  Report Type: Spontaneous
  Country: ZA (occurrence: ZA)
  Receive Date: 20171116
  Receipt Date: 20171130
  Transmission Date: 20180321
  Serious: Yes (Other)
  Sender: FDA-Public Use
  Company Number: ZA-GLAXOSMITHKLINE-ZA2017GSK175340

PATIENT
  Age: 74 Year
  Sex: Male

DRUGS (2)
  1. DUODART [Suspect]
     Active Substance: DUTASTERIDE\TAMSULOSIN
     Indication: PRODUCT USED FOR UNKNOWN INDICATION
     Dosage: UNK
     Route: 065
     Dates: start: 20171106
  2. HYDROXYUREA. [Concomitant]
     Active Substance: HYDROXYUREA
     Indication: POLYCYTHAEMIA VERA
     Dosage: UNK
     Route: 065
     Dates: start: 2015

REACTIONS (10)
  - Urinary incontinence [Unknown]
  - Haematuria [Unknown]
  - Renal failure [Not Recovered/Not Resolved]
  - Bladder obstruction [Unknown]
  - Lower urinary tract symptoms [Unknown]
  - Bladder hypertrophy [Not Recovered/Not Resolved]
  - Condition aggravated [Unknown]
  - Acute kidney injury [Not Recovered/Not Resolved]
  - Drug interaction [Unknown]
  - Perinephric oedema [Unknown]
